FAERS Safety Report 5349517-6 (Version None)
Quarter: 2007Q2

REPORT INFORMATION
  Report Type: 
  Country: None (occurrence: None)
  Receive Date: 20070504
  Receipt Date: 20070102
  Transmission Date: 20071010
  Serious: Yes (Other)
  Sender: FDA-Public Use
  Company Number: PHEH2006US13049

PATIENT
  Age: 45 Year
  Sex: Male
  Weight: 98.9 kg

DRUGS (2)
  1. DIOVAN HCT [Suspect]
     Indication: HYPERTENSION
     Dosage: SEE IMAGE
     Route: 048
     Dates: start: 20060707, end: 20061102
  2. VYTORIN [Concomitant]

REACTIONS (4)
  - HEART RATE INCREASED [None]
  - JOINT STIFFNESS [None]
  - MUSCLE TIGHTNESS [None]
  - MYALGIA [None]
